FAERS Safety Report 6531676-0 (Version None)
Quarter: 2010Q1

REPORT INFORMATION
  Report Type: 
  Country: None (occurrence: None)
  Receive Date: 20100108
  Receipt Date: 20100106
  Transmission Date: 20100710
  Serious: Yes (Hospitalization, Other)
  Sender: FDA-Public Use
  Company Number: GB-BRISTOL-MYERS SQUIBB COMPANY-13478607

PATIENT
  Age: 36 Year
  Sex: Male

DRUGS (3)
  1. CISPLATIN [Suspect]
     Indication: TESTIS CANCER
     Dosage: DAYS 1-2
     Route: 042
  2. ETOPOSIDE [Suspect]
     Indication: TESTIS CANCER
     Dosage: DAYS 1-3
     Route: 042
  3. DEXAMETHASONE [Suspect]
     Indication: TESTIS CANCER
     Dosage: 8 MG ON DAY 1. 4 MG - CYCLICAL. DAYS 2 TO 5 OF EACH CYCLE.
     Route: 048

REACTIONS (3)
  - GAIT DISTURBANCE [None]
  - GROIN PAIN [None]
  - OSTEONECROSIS [None]
